FAERS Safety Report 8956986 (Version 2)
Quarter: 2012Q4

REPORT INFORMATION
  Report Type: 
  Country: US (occurrence: US)
  Receive Date: 20121211
  Receipt Date: 20121226
  Transmission Date: 20130627
  Serious: Yes (Death, Other)
  Sender: FDA-Public Use
  Company Number: US-PFIZER INC-2012306951

PATIENT
  Age: 72 Year
  Sex: Male

DRUGS (2)
  1. SUTENT [Suspect]
     Indication: KIDNEY CANCER
     Dosage: 50 mg, daily
  2. SUTENT [Suspect]
     Dosage: 25 mg, UNK
     Dates: start: 20120507, end: 20121101

REACTIONS (3)
  - Intestinal perforation [Fatal]
  - Disease progression [Fatal]
  - Renal cancer [Fatal]
